FAERS Safety Report 7633398-1 (Version None)
Quarter: 2011Q3

REPORT INFORMATION
  Report Type: 
  Country: None (occurrence: None)
  Receive Date: 20110725
  Receipt Date: 20101215
  Transmission Date: 20111222
  Serious: No
  Sender: FDA-Public Use
  Company Number: US-BRISTOL-MYERS SQUIBB COMPANY-15445091

PATIENT

DRUGS (2)
  1. SPRYCEL [Suspect]
  2. TIKOSYN [Concomitant]

REACTIONS (1)
  - FLUID RETENTION [None]
